FAERS Safety Report 11495170 (Version 1)
Quarter: 2015Q3

REPORT INFORMATION
  Report Type: Report from Study
  Country: PR (occurrence: PR)
  Receive Date: 20150911
  Receipt Date: 20150911
  Transmission Date: 20151125
  Serious: Yes (Death)
  Sender: FDA-Public Use
  Company Number: PR-ABBVIE-15K-131-1461577-00

PATIENT
  Sex: Female

DRUGS (1)
  1. HUMIRA [Suspect]
     Active Substance: ADALIMUMAB
     Indication: RHEUMATOID ARTHRITIS
     Route: 065
     Dates: end: 2015

REACTIONS (3)
  - Red blood cell count increased [Fatal]
  - White blood cell count increased [Fatal]
  - Osteoporosis [Fatal]

NARRATIVE: CASE EVENT DATE: 2015
